FAERS Safety Report 9052457 (Version 1)
Quarter: 2013Q1

REPORT INFORMATION
  Report Type: Spontaneous
  Country: IT (occurrence: IT)
  Receive Date: 20130207
  Receipt Date: 20130207
  Transmission Date: 20140127
  Serious: Yes (Hospitalization)
  Sender: FDA-Public Use
  Company Number: IT-TEVA-383931ISR

PATIENT
  Age: 51 None
  Sex: Female

DRUGS (8)
  1. METHOTREXATE [Suspect]
     Indication: RHEUMATOID ARTHRITIS
     Dates: start: 20101203, end: 20110201
  2. ENBREL [Suspect]
     Indication: RHEUMATOID ARTHRITIS
     Route: 058
     Dates: start: 20101216, end: 20110118
  3. FOLINA [Concomitant]
     Indication: RHEUMATOID ARTHRITIS
     Dosage: 15MG/2ML
     Dates: start: 20101204, end: 20110201
  4. OPTINATE [Concomitant]
     Indication: OSTEOPOROSIS
     Dosage: 30MG
  5. EUTIROX [Concomitant]
     Indication: HYPOTHYROIDISM
     Dosage: 75 MCG
  6. CALCIO CARBONATO+VITAMIN D3 [Concomitant]
     Indication: OSTEOPOROSIS
     Dosage: CALCIUM CARBONATE 1000MG/ VITAMIN D3 880 IU
  7. ORUDIS [Concomitant]
     Indication: RHEUMATOID ARTHRITIS
     Dosage: 50MG
  8. LANSOPRAZOLO [Concomitant]
     Indication: GASTRITIS

REACTIONS (1)
  - Breast cancer [Recovered/Resolved]
